FAERS Safety Report 8547768-0 (Version None)
Quarter: 2012Q3

REPORT INFORMATION
  Report Type: 
  Country: None (occurrence: None)
  Receive Date: 20120727
  Receipt Date: 20111228
  Transmission Date: 20120928
  Serious: Yes (Other)
  Sender: FDA-Public Use
  Company Number: US-ASTRAZENECA-2011SE78726

PATIENT
  Age: 16305 Day
  Sex: Male

DRUGS (10)
  1. SEROQUEL [Suspect]
     Dosage: 25-800MG DAILY
     Route: 048
  2. COGENTIN [Concomitant]
     Dosage: 0.5-6 MG DAILY
  3. ZYPREXA [Concomitant]
     Dates: start: 20080408
  4. DEPAKOTE [Concomitant]
     Dosage: 250 QAM 500QPM
  5. HALDOL [Concomitant]
     Dates: start: 20080408
  6. ABILIFY [Concomitant]
     Dosage: 10-30MG DAILY
  7. SEROQUEL [Suspect]
     Route: 048
     Dates: start: 20080804
  8. HYDROCHLOROTHIAZIDE [Concomitant]
     Route: 048
     Dates: start: 20080408
  9. RISPERDAL [Concomitant]
     Dosage: 2-8MG DAILY
  10. INVEGA [Concomitant]
     Dosage: 3-12MG DAILY

REACTIONS (1)
  - TARDIVE DYSKINESIA [None]
